FAERS Safety Report 8558855-5 (Version None)
Quarter: 2012Q3

REPORT INFORMATION
  Report Type: 
  Country: None (occurrence: None)
  Receive Date: 20120801
  Receipt Date: 20120727
  Transmission Date: 20120928
  Serious: Yes (Hospitalization, Other)
  Sender: FDA-Public Use
  Company Number: PHEH2012US014774

PATIENT
  Sex: Male

DRUGS (2)
  1. LOPRESSOR [Suspect]
     Indication: HYPERTENSION
  2. NORVASC [Suspect]

REACTIONS (1)
  - RECTAL HAEMORRHAGE [None]
